FAERS Safety Report 9935079 (Version 1)
Quarter: 2014Q1

REPORT INFORMATION
  Report Type: Spontaneous
  Country: US (occurrence: US)
  Receive Date: 20140228
  Receipt Date: 20140228
  Transmission Date: 20141002
  Serious: Yes (Hospitalization, Other)
  Sender: FDA-Public Use
  Company Number: US-PFIZER INC-2014056338

PATIENT
  Age: 44 Year
  Sex: Female
  Weight: 90.7 kg

DRUGS (4)
  1. LYRICA [Suspect]
     Indication: FIBROMYALGIA
     Dosage: UNK
     Dates: start: 2013, end: 201402
  2. PERCOCET [Concomitant]
     Indication: PAIN
     Dosage: 10 MG, (4-6 TIMES A DAY)
  3. NAPROXEN [Concomitant]
     Indication: ARTHRITIS
     Dosage: 550 MG, 2X/DAY
  4. PROZAC [Concomitant]
     Indication: DEPRESSION
     Dosage: 40 MG, 1X/DAY

REACTIONS (2)
  - Pain [Not Recovered/Not Resolved]
  - Pneumonia [Not Recovered/Not Resolved]
